FAERS Safety Report 18851635 (Version 1)
Quarter: 2021Q1

REPORT INFORMATION
  Report Type: Spontaneous
  Country: US (occurrence: US)
  Receive Date: 20210204
  Receipt Date: 20210204
  Transmission Date: 20210420
  Serious: Yes (Hospitalization, Disabling)
  Sender: FDA-Public Use
  Company Number: None

PATIENT
  Age: 24 Year
  Sex: Female
  Weight: 87.75 kg

DRUGS (6)
  1. HYDROCORTISONE 5MG [Concomitant]
  2. ZOFRAN ODT 4MG [Concomitant]
  3. VITAMIN D  1.25MG [Concomitant]
  4. POTASSIUM PHOSPHATE/SODIUM PHOSPHATE 130MG TABS [Concomitant]
  5. PRILOSEC 40MG [Concomitant]
  6. INJECTAFER [Suspect]
     Active Substance: FERRIC CARBOXYMALTOSE
     Indication: IRON DEFICIENCY ANAEMIA
     Dates: start: 20201105, end: 20201112

REACTIONS (8)
  - Gait inability [None]
  - Myalgia [None]
  - Urinary incontinence [None]
  - Bone pain [None]
  - Fatigue [None]
  - Nausea [None]
  - Hypophosphataemia [None]
  - Adrenocortical insufficiency acute [None]

NARRATIVE: CASE EVENT DATE: 20201128
